FAERS Safety Report 8152016-X (Version None)
Quarter: 2012Q1

REPORT INFORMATION
  Report Type: 
  Country: None (occurrence: None)
  Receive Date: 20120214
  Receipt Date: 20120131
  Transmission Date: 20120608
  Serious: Yes (Hospitalization)
  Sender: FDA-Public Use
  Company Number: IL-2012-0461

PATIENT
  Age: 59 Year
  Sex: Male

DRUGS (3)
  1. CISPLATIN [Concomitant]
  2. NAVELBINE [Suspect]
     Indication: NON-SMALL CELL LUNG CANCER
     Dosage: 50 MG   IV
     Route: 042
  3. MITOMYCIN [Concomitant]

REACTIONS (4)
  - TACHYCARDIA [None]
  - INFUSION RELATED REACTION [None]
  - ACUTE PULMONARY OEDEMA [None]
  - CARDIOTOXICITY [None]
